FAERS Safety Report 5887726-8 (Version None)
Quarter: 2008Q3

REPORT INFORMATION
  Report Type: 
  Country: None (occurrence: None)
  Receive Date: 20080918
  Receipt Date: 20080911
  Transmission Date: 20090109
  Serious: Yes (Hospitalization)
  Sender: FDA-Public Use
  Company Number: FR-AVENTIS-200813289FR

PATIENT
  Age: 77 Year
  Sex: Male

DRUGS (3)
  1. OFLOCET                            /00731801/ [Suspect]
     Route: 048
     Dates: start: 20080510, end: 20080615
  2. LOVENOX [Suspect]
     Indication: THROMBOSIS
     Route: 058
     Dates: start: 20080613, end: 20080626
  3. ORBENINE [Suspect]
     Route: 048
     Dates: start: 20080510, end: 20080615

REACTIONS (1)
  - HEPATITIS [None]
